FAERS Safety Report 9708736 (Version 1)
Quarter: 2013Q4

REPORT INFORMATION
  Report Type: Spontaneous
  Country: US (occurrence: US)
  Receive Date: 20131125
  Receipt Date: 20131125
  Transmission Date: 20140711
  Serious: Yes (Death)
  Sender: FDA-Public Use
  Company Number: US-GLAXOSMITHKLINE-A1051116A

PATIENT
  Age: 75 Year
  Sex: Male

DRUGS (1)
  1. HYCAMTIN [Suspect]
     Indication: BRONCHIAL CARCINOMA
     Dosage: 4MG PER DAY
     Route: 048
     Dates: start: 20130808

REACTIONS (1)
  - Death [Fatal]
